FAERS Safety Report 8518432-9 (Version None)
Quarter: 2012Q3

REPORT INFORMATION
  Report Type: 
  Country: None (occurrence: None)
  Receive Date: 20120718
  Receipt Date: 20120314
  Transmission Date: 20120928
  Serious: No
  Sender: FDA-Public Use
  Company Number: US-BRISTOL-MYERS SQUIBB COMPANY-16423212

PATIENT
  Age: 60 Year
  Sex: Male
  Weight: 162 kg

DRUGS (10)
  1. GLUCOTROL XL [Suspect]
     Indication: DIABETES MELLITUS
     Dosage: TAB
     Route: 048
     Dates: start: 20000101
  2. CODEINE [Concomitant]
     Indication: BACK PAIN
  3. COUMADIN [Suspect]
  4. AMIODARONE HCL [Concomitant]
     Indication: ARRHYTHMIA
  5. AMIODARONE HCL [Concomitant]
     Indication: ATRIAL FIBRILLATION
  6. VANCOMYCIN [Suspect]
  7. PERCOCET [Concomitant]
     Indication: SCIATICA
     Dosage: TABS
     Route: 048
  8. TYLENOL [Concomitant]
     Indication: ARTHRITIS
  9. MOTRIN [Suspect]
     Indication: ARTHRITIS
     Dosage: TABS
     Route: 048
  10. TYLENOL [Concomitant]
     Indication: BACK PAIN

REACTIONS (4)
  - RASH [None]
  - WEIGHT INCREASED [None]
  - TOOTH FRACTURE [None]
  - BLOOD GLUCOSE INCREASED [None]
